FAERS Safety Report 4332347-1 (Version None)
Quarter: 2004Q2

REPORT INFORMATION
  Report Type: 
  Country: None (occurrence: None)
  Receive Date: 20040401
  Receipt Date: 20040319
  Transmission Date: 20050107
  Serious: Yes (Hospitalization)
  Sender: FDA-Public Use
  Company Number: 2004SE01513

PATIENT
  Age: 86 Year
  Sex: Male
  Weight: 75 kg

DRUGS (4)
  1. SEROQUEL [Suspect]
     Indication: DEMENTIA
     Dosage: 50 MG DAILY PO
     Route: 048
     Dates: start: 20040112, end: 20040210
  2. DILTIZEM [Concomitant]
  3. SURGAM [Concomitant]
  4. MADOPAR [Concomitant]

REACTIONS (1)
  - HEPATITIS TOXIC [None]
